FAERS Safety Report 4746029-5 (Version None)
Quarter: 2005Q3

REPORT INFORMATION
  Report Type: 
  Country: None (occurrence: None)
  Receive Date: 20050816
  Receipt Date: 20050809
  Transmission Date: 20060218
  Serious: Yes (Other)
  Sender: FDA-Public Use
  Company Number: JP-BRISTOL-MYERS SQUIBB COMPANY-13072707

PATIENT
  Sex: Female

DRUGS (2)
  1. TAXOL [Suspect]
     Indication: OVARIAN CANCER
     Route: 042
  2. PARAPLATIN [Suspect]
     Indication: OVARIAN CANCER
     Route: 042

REACTIONS (1)
  - INTERSTITIAL LUNG DISEASE [None]
